FAERS Safety Report 5189225-8 (Version None)
Quarter: 2006Q4

REPORT INFORMATION
  Report Type: 
  Country: None (occurrence: None)
  Receive Date: 20061218
  Receipt Date: 20061207
  Transmission Date: 20070319
  Serious: Yes (Hospitalization)
  Sender: FDA-Public Use
  Company Number: 440027K06USA

PATIENT
  Age: 54 Year
  Sex: Male
  Weight: 65.318 kg

DRUGS (6)
  1. SEROSTIM [Suspect]
     Indication: CACHEXIA
     Dosage: 6 MG, 1 I IN 1 DAYS
     Dates: start: 20030101
  2. EPIVIR [Concomitant]
  3. VIREAD [Concomitant]
  4. MS CONTIN [Concomitant]
  5. KALETRA [Concomitant]
  6. ZEBETA [Concomitant]

REACTIONS (5)
  - ARRHYTHMIA [None]
  - ENZYME ABNORMALITY [None]
  - MITRAL VALVE PROLAPSE [None]
  - MUSCLE DISORDER [None]
  - SINUS TACHYCARDIA [None]
